FAERS Safety Report 9784184 (Version 2)
Quarter: 2013Q4

REPORT INFORMATION
  Report Type: Spontaneous
  Country: FR (occurrence: FR)
  Receive Date: 20131226
  Receipt Date: 20131226
  Transmission Date: 20140711
  Serious: Yes (Other)
  Sender: FDA-Public Use
  Company Number: FR-ACORDA-ACO_100368_2013

PATIENT
  Age: 59 Year
  Sex: Female
  Weight: 93 kg

DRUGS (2)
  1. FAMPYRA [Suspect]
     Indication: GAIT DISTURBANCE
     Dosage: 10 MG, BID
     Route: 048
     Dates: start: 20130611, end: 20130726
  2. TRILEPTAL [Concomitant]
     Indication: NEURALGIA
     Dosage: 150 MG, BID
     Route: 048
     Dates: start: 199906

REACTIONS (1)
  - Hypoaesthesia oral [Recovered/Resolved with Sequelae]
